FAERS Safety Report 9115333 (Version 1)
Quarter: 2013Q1

REPORT INFORMATION
  Report Type: Spontaneous
  Country: US (occurrence: US)
  Receive Date: 20130225
  Receipt Date: 20130225
  Transmission Date: 20140127
  Serious: No
  Sender: FDA-Public Use
  Company Number: US-ENDO PHARMACEUTICALS INC.-FORT20110104

PATIENT
  Sex: Male
  Weight: 63.56 kg

DRUGS (5)
  1. FORTESTA [Suspect]
     Indication: BLOOD TESTOSTERONE DECREASED
     Dates: start: 2011
  2. PERCOCET [Concomitant]
     Indication: PAIN
     Dosage: 40/1300 MG
     Route: 048
     Dates: start: 2009
  3. ALPRAZOLAM [Concomitant]
     Indication: ANXIETY
     Route: 048
     Dates: start: 1991
  4. GABAPENTIN [Concomitant]
     Indication: NEUROPATHY PERIPHERAL
     Route: 048
     Dates: start: 2011
  5. PRILOSEC [Concomitant]
     Indication: DYSPEPSIA
     Dosage: UNK
     Route: 048
     Dates: start: 2006

REACTIONS (2)
  - Application site exfoliation [Recovering/Resolving]
  - Application site burn [Not Recovered/Not Resolved]
